FAERS Safety Report 9449155 (Version 1)
Quarter: 2013Q3

REPORT INFORMATION
  Report Type: Spontaneous
  Country: US (occurrence: None)
  Receive Date: 20130806
  Receipt Date: 20130806
  Transmission Date: 20140515
  Serious: Yes (Hospitalization)
  Sender: FDA-Public Use
  Company Number: 2013P1014464

PATIENT
  Age: 84 Year
  Sex: Female
  Weight: 74.39 kg

DRUGS (1)
  1. INFUMORPH [Suspect]
     Indication: SPINAL COLUMN STENOSIS
     Route: 037
     Dates: end: 201307

REACTIONS (2)
  - Consciousness fluctuating [None]
  - Local swelling [None]
